FAERS Safety Report 6124092-7 (Version None)
Quarter: 2009Q1

REPORT INFORMATION
  Report Type: 
  Country: None (occurrence: None)
  Receive Date: 20090318
  Receipt Date: 20090318
  Transmission Date: 20090719
  Serious: Yes (Disabling)
  Sender: FDA-Public Use
  Company Number: None

PATIENT
  Sex: Female
  Weight: 117.73 kg

DRUGS (18)
  1. METHOTREXATE (RHEUM.) [Suspect]
     Dosage: 2.5MG TABLET 12.5 MG QWEEK ORAL
     Route: 048
     Dates: start: 20071212, end: 20090318
  2. ALLEGRA (FEXOFENADINE HCL) [Concomitant]
  3. ALLOPURINOL [Concomitant]
  4. AMBIEN [Concomitant]
  5. AMITRIPTYLINE HCL [Concomitant]
  6. COLCHICINE [Concomitant]
  7. FIORINAL [Concomitant]
  8. FLEXERIL [Concomitant]
  9. FOLIC ACID [Concomitant]
  10. K-DUR [Concomitant]
  11. LASIX [Concomitant]
  12. LISINOPRIL [Concomitant]
  13. NADOLOL [Concomitant]
  14. NASONEX [Concomitant]
  15. PLAQUENIL [Concomitant]
  16. PREDNISONE [Concomitant]
  17. ROBITUSSIN AC (GUAIFENESIN AC) [Concomitant]
  18. SIMVASTATIN [Concomitant]

REACTIONS (1)
  - HEPATOTOXICITY [None]
